FAERS Safety Report 7818642-X (Version None)
Quarter: 2011Q4

REPORT INFORMATION
  Report Type: 
  Country: None (occurrence: None)
  Receive Date: 20111018
  Receipt Date: 20111007
  Transmission Date: 20120403
  Serious: Yes (Hospitalization)
  Sender: FDA-Public Use
  Company Number: DE-AMGEN-DEUCT2011046050

PATIENT
  Age: 73 Year
  Sex: Male
  Weight: 80.5 kg

DRUGS (6)
  1. PREDNISOLONE [Concomitant]
     Indication: RHEUMATOID ARTHRITIS
     Dosage: 5 MG PER DAY
     Dates: start: 20000101
  2. FENTANYL [Concomitant]
     Indication: PAIN
     Dosage: 50 UG, EVERY THREE DAYS
  3. ETANERCEPT [Suspect]
     Dosage: 50 MG, WEEKLY
     Dates: start: 20110101
  4. ZOLEDRONOC ACID [Concomitant]
     Indication: OSTEOPOROSIS
     Dosage: ONCE PER YEAR
  5. FALITHROM [Concomitant]
     Indication: CORONARY ARTERY DISEASE
     Dosage: ACCORDING TO QUICK'S VALUE
     Dates: start: 20030101
  6. ETANERCEPT [Suspect]
     Indication: RHEUMATOID ARTHRITIS
     Dosage: 50 MG, WEEKLY
     Dates: start: 20100630, end: 20110501

REACTIONS (1)
  - RIB FRACTURE [None]
